FAERS Safety Report 8635648 (Version 4)
Quarter: 2012Q4

REPORT INFORMATION
  Report Type: 
  Country: IT (occurrence: IT)
  Receive Date: 20120626
  Receipt Date: 20121112
  Transmission Date: 20130627
  Serious: Yes (Death)
  Sender: FDA-Public Use
  Company Number: IT-PFIZER INC-2012149262

PATIENT
  Age: 78 Year
  Sex: Female

DRUGS (8)
  1. TYGACIL [Suspect]
     Indication: BILATERAL PNEUMONIA
     Dosage: 100 mg, 1x/day
     Route: 042
     Dates: start: 20120506, end: 20120518
  2. FLUCONAZOLE [Concomitant]
     Dosage: 100 mg, UNK
     Dates: start: 20120509
  3. ALLOPURINOL [Concomitant]
     Dosage: 300 mg, UNK
     Route: 048
  4. ATORVASTATIN [Concomitant]
  5. DILTIAZEM [Concomitant]
  6. PREGABALIN [Concomitant]
  7. MERREM [Concomitant]
     Dosage: 1 g, UNK
     Route: 042
     Dates: start: 20120509
  8. POTASSIUM SUPPLEMENT [Concomitant]

REACTIONS (1)
  - Hepatitis acute [Fatal]
